FAERS Safety Report 5319484-X (Version None)
Quarter: 2007Q2

REPORT INFORMATION
  Report Type: 
  Country: None (occurrence: None)
  Receive Date: 20070508
  Receipt Date: 20070426
  Transmission Date: 20071010
  Serious: Yes (Hospitalization, Other)
  Sender: FDA-Public Use
  Company Number: US-PFIZER INC-2007033463

PATIENT
  Sex: Male
  Weight: 80.2 kg

DRUGS (14)
  1. SUTENT [Suspect]
     Indication: PROSTATE CANCER METASTATIC
     Route: 048
     Dates: start: 20070329, end: 20070404
  2. SUTENT [Suspect]
     Route: 048
  3. TAXOTERE [Suspect]
     Indication: PROSTATE CANCER METASTATIC
     Route: 042
  4. ACTONEL [Concomitant]
     Route: 048
  5. ALLOPURINOL [Concomitant]
     Route: 048
     Dates: start: 20030101
  6. ENALAPRIL MALEATE AND HYDROCHLOROTHIAZIDE [Concomitant]
     Route: 048
     Dates: start: 20070101
  7. LUPRON [Concomitant]
     Route: 030
     Dates: start: 20030101
  8. NORVASC [Concomitant]
     Route: 048
     Dates: start: 20061201
  9. OMEPRAZOLE [Concomitant]
     Route: 048
     Dates: start: 20070101
  10. ZOCOR [Concomitant]
     Route: 048
     Dates: start: 20010101
  11. ZOLOFT [Concomitant]
     Route: 048
     Dates: start: 20050101
  12. VITAMIN CAP [Concomitant]
     Route: 048
     Dates: start: 20070301
  13. TRICOR [Concomitant]
     Route: 048
  14. PREDNISONE TAB [Concomitant]
     Route: 048

REACTIONS (1)
  - CHEST PAIN [None]
